FAERS Safety Report 16931583 (Version 2)
Quarter: 2019Q4

REPORT INFORMATION
  Report Type: Report from Study
  Country: GB (occurrence: GB)
  Receive Date: 20191017
  Receipt Date: 20191025
  Transmission Date: 20200122
  Serious: Yes (Other)
  Sender: FDA-Public Use
  Company Number: PHHY2019GB215289

PATIENT

DRUGS (1)
  1. KISQALI [Suspect]
     Active Substance: RIBOCICLIB
     Indication: BREAST CANCER METASTATIC
     Dosage: 600 MG, QD
     Route: 048

REACTIONS (5)
  - Pulmonary fibrosis [Unknown]
  - Neutropenia [Unknown]
  - Breast cancer metastatic [Unknown]
  - Pneumonia [Unknown]
  - Malignant neoplasm progression [Unknown]
